FAERS Safety Report 6584872-0 (Version None)
Quarter: 2010Q1

REPORT INFORMATION
  Report Type: 
  Country: None (occurrence: None)
  Receive Date: 20100125
  Receipt Date: 20091009
  Transmission Date: 20100710
  Serious: Yes (Hospitalization)
  Sender: FDA-Public Use
  Company Number: 2009BI030301

PATIENT
  Age: 48 Year
  Sex: Male

DRUGS (8)
  1. TYSABRI [Suspect]
     Indication: MULTIPLE SCLEROSIS
     Dosage: 300 MG;QM;IV
     Route: 042
     Dates: start: 20061121
  2. EXEDRIN [Concomitant]
  3. GLYCOLAX [Concomitant]
  4. OXYCONTIN [Concomitant]
  5. PAROXETINE HCL [Concomitant]
  6. POLYETHYLENE GLYCOL 3350 [Concomitant]
  7. RELPAX [Concomitant]
  8. PREV MEDS [Concomitant]

REACTIONS (1)
  - PNEUMONIA [None]
